FAERS Safety Report 9257800 (Version 1)
Quarter: 2013Q1

REPORT INFORMATION
  Report Type: Spontaneous
  Country: US (occurrence: None)
  Receive Date: 20121212
  Receipt Date: 20121212
  Transmission Date: 20140127
  Serious: No
  Sender: FDA-Public Use
  Company Number: 1210USA006190

PATIENT
  Age: 60 Year
  Sex: Female

DRUGS (3)
  1. VICTRELIS [Suspect]
     Indication: HEPATITIS C
     Dates: start: 20121005
  2. RIBAVIRIN [Suspect]
     Indication: HEPATITIS C
     Dates: start: 20120907
  3. PEGINTERFERON ALFA-2B [Suspect]
     Indication: HEPATITIS C
     Dates: start: 20120913

REACTIONS (10)
  - Dizziness [None]
  - Lethargy [None]
  - White blood cell count decreased [None]
  - Memory impairment [None]
  - Pain in extremity [None]
  - Fatigue [None]
  - Visual acuity reduced [None]
  - Cough [None]
  - Pyrexia [None]
  - Chills [None]
